FAERS Safety Report 8617371-2 (Version None)
Quarter: 2012Q3

REPORT INFORMATION
  Report Type: 
  Country: None (occurrence: None)
  Receive Date: 20120823
  Receipt Date: 20120810
  Transmission Date: 20120928
  Serious: No
  Sender: FDA-Public Use
  Company Number: US-ASTRAZENECA-2012SE40406

PATIENT
  Age: 55 Year
  Sex: Female
  Weight: 70.3 kg

DRUGS (6)
  1. SEROQUEL [Suspect]
     Route: 048
  2. SEROQUEL [Suspect]
     Route: 048
  3. SEROQUEL [Suspect]
     Indication: ANXIETY
     Route: 048
  4. SEROQUEL [Suspect]
     Route: 048
  5. SEROQUEL [Suspect]
     Indication: DEPRESSION
     Route: 048
  6. SEROQUEL [Suspect]
     Route: 048

REACTIONS (9)
  - BALANCE DISORDER [None]
  - ADVERSE DRUG REACTION [None]
  - FATIGUE [None]
  - DRUG DOSE OMISSION [None]
  - SLUGGISHNESS [None]
  - GAIT DISTURBANCE [None]
  - HALLUCINATION, VISUAL [None]
  - DRUG INTOLERANCE [None]
  - HYPERSOMNIA [None]
